FAERS Safety Report 10867065 (Version 1)
Quarter: 2015Q1

REPORT INFORMATION
  Report Type: Spontaneous
  Country: US (occurrence: None)
  Receive Date: 20150220
  Receipt Date: 20150220
  Transmission Date: 20150721
  Serious: Yes (Hospitalization)
  Sender: FDA-Public Use
  Company Number: None

PATIENT
  Age: 55 Year
  Sex: Female
  Weight: 54.43 kg

DRUGS (4)
  1. LYMPHAZURIN [Suspect]
     Active Substance: ISOSULFAN BLUE
     Indication: MASTECTOMY
     Route: 058
     Dates: start: 20150210
  2. CELEBREX [Concomitant]
     Active Substance: CELECOXIB
  3. IV ACETAMINOPHEN [Concomitant]
  4. EMEND [Concomitant]
     Active Substance: APREPITANT

REACTIONS (3)
  - Erythema [None]
  - Breath sounds abnormal [None]
  - Anaphylactic reaction [None]

NARRATIVE: CASE EVENT DATE: 20150210
